FAERS Safety Report 24229426 (Version 2)
Quarter: 2024Q3

REPORT INFORMATION
  Report Type: Report from Study
  Country: US (occurrence: US)
  Receive Date: 20240820
  Receipt Date: 20240824
  Transmission Date: 20241017
  Serious: Yes (Hospitalization, Other)
  Sender: IPSEN
  Company Number: US-IPSEN Group, Research and Development-2024-16168

PATIENT
  Age: 40 Year
  Sex: Male
  Weight: 46.5 kg

DRUGS (6)
  1. ONIVYDE [Suspect]
     Active Substance: IRINOTECAN HYDROCHLORIDE
     Indication: Colorectal cancer metastatic
     Dosage: FREQUENCY (OTHER): DAYS 1 AND 15 OF 28 DAY CYCLE
     Route: 042
     Dates: start: 20240625
  2. BEVACIZUMAB [Suspect]
     Active Substance: BEVACIZUMAB
     Indication: Colorectal cancer metastatic
     Dosage: FREQUENCY (OTHER) DAYS 1 AND 15 OF 28 DAY CYCLE.
     Route: 042
     Dates: start: 20240625
  3. LONSURF [Suspect]
     Active Substance: TIPIRACIL HYDROCHLORIDE\TRIFLURIDINE
     Indication: Colorectal cancer metastatic
     Dosage: FREQUENCY (OTHER) TWICE DAILY DAYS 1 THRU 5 AND 15 THRU 19 OF 28 DAY CYCLE.
     Route: 065
     Dates: start: 20240625
  4. MORPHINE SULFATE [Concomitant]
     Active Substance: MORPHINE SULFATE
     Dates: start: 20240529
  5. LOPERAMIDE [Concomitant]
     Active Substance: LOPERAMIDE
     Dates: start: 20240630
  6. FILGRASTIM [Concomitant]
     Active Substance: FILGRASTIM
     Dates: start: 20240630

REACTIONS (1)
  - Cholecystitis [Unknown]

NARRATIVE: CASE EVENT DATE: 20240811
